FAERS Safety Report 25445495 (Version 1)
Quarter: 2025Q2

REPORT INFORMATION
  Report Type: Spontaneous
  Country: ET (occurrence: ET)
  Receive Date: 20250617
  Receipt Date: 20250617
  Transmission Date: 20250717
  Serious: Yes (Hospitalization, Other)
  Sender: STRIDES
  Company Number: None

PATIENT
  Age: 7 Month
  Sex: Female

DRUGS (24)
  1. AMPICILLIN TRIHYDRATE [Suspect]
     Active Substance: AMPICILLIN TRIHYDRATE
     Indication: Antibiotic therapy
     Route: 065
  2. VANCOMYCIN [Suspect]
     Active Substance: VANCOMYCIN
     Indication: Pneumonia
     Route: 065
  3. MEROPENEM [Suspect]
     Active Substance: MEROPENEM
     Indication: Pneumonia
     Route: 065
  4. VANCOMYCIN [Suspect]
     Active Substance: VANCOMYCIN
     Indication: Pneumonia
     Route: 065
  5. VANCOMYCIN [Suspect]
     Active Substance: VANCOMYCIN
     Indication: Rickets
  6. VANCOMYCIN [Suspect]
     Active Substance: VANCOMYCIN
     Indication: Malaria
  7. CEFTRIAXONE [Suspect]
     Active Substance: CEFTRIAXONE
     Indication: Antibiotic therapy
     Route: 065
  8. CEFTAZIDIME [Suspect]
     Active Substance: CEFTAZIDIME
     Indication: Pneumonia
     Route: 065
  9. ARTESUNATE [Suspect]
     Active Substance: ARTESUNATE
     Indication: Pneumonia
     Route: 065
  10. CIPROFLOXACIN [Suspect]
     Active Substance: CIPROFLOXACIN
     Indication: Pneumonia
     Route: 065
  11. CEFEPIME [Suspect]
     Active Substance: CEFEPIME HYDROCHLORIDE
     Indication: Pneumonia
     Route: 065
  12. PYRIDOXINE [Suspect]
     Active Substance: PYRIDOXINE
     Indication: Evidence based treatment
     Route: 065
  13. PYRIDOXINE [Suspect]
     Active Substance: PYRIDOXINE
     Indication: Antibiotic prophylaxis
  14. RIFAMPIN [Suspect]
     Active Substance: RIFAMPIN
     Indication: Evidence based treatment
     Route: 065
  15. RIFAMPIN [Suspect]
     Active Substance: RIFAMPIN
     Indication: Antibiotic prophylaxis
  16. ISONIAZID [Suspect]
     Active Substance: ISONIAZID
     Indication: Evidence based treatment
     Route: 065
  17. ISONIAZID [Suspect]
     Active Substance: ISONIAZID
     Indication: Antibiotic prophylaxis
  18. PYRAZINAMIDE [Suspect]
     Active Substance: PYRAZINAMIDE
     Indication: Evidence based treatment
     Route: 065
  19. PYRAZINAMIDE [Suspect]
     Active Substance: PYRAZINAMIDE
     Indication: Antibiotic prophylaxis
  20. ETHAMBUTOL [Suspect]
     Active Substance: ETHAMBUTOL HYDROCHLORIDE
     Indication: Evidence based treatment
     Route: 065
  21. ETHAMBUTOL [Suspect]
     Active Substance: ETHAMBUTOL HYDROCHLORIDE
     Indication: Antibiotic prophylaxis
  22. VITAMIN D [Concomitant]
     Active Substance: VITAMIN D NOS
     Indication: Pneumonia
     Route: 065
  23. VITAMIN D [Concomitant]
     Active Substance: VITAMIN D NOS
     Indication: Rickets
  24. VITAMIN D [Concomitant]
     Active Substance: VITAMIN D NOS
     Indication: Malaria

REACTIONS (5)
  - Fungaemia [Recovered/Resolved]
  - Fungal infection [Recovered/Resolved]
  - Respiratory distress [Recovered/Resolved]
  - Cough [Recovered/Resolved]
  - Diarrhoea [Recovered/Resolved]
